FAERS Safety Report 24166795 (Version 2)
Quarter: 2024Q3

REPORT INFORMATION
  Report Type: Report from Study
  Country: US (occurrence: US)
  Receive Date: 20240802
  Receipt Date: 20240828
  Transmission Date: 20241017
  Serious: Yes (Other)
  Sender: CHIESI
  Company Number: US-CHIESI-2024CHF04672

PATIENT
  Age: 51 Year
  Sex: Male

DRUGS (1)
  1. ELFABRIO [Suspect]
     Active Substance: PEGUNIGALSIDASE ALFA-IWXJ
     Indication: Fabry^s disease
     Dosage: UNK

REACTIONS (17)
  - Deafness [Unknown]
  - Migraine [Unknown]
  - Tinnitus [Unknown]
  - Constipation [Unknown]
  - Hyperhidrosis [Unknown]
  - Palpitations [Unknown]
  - Abdominal pain upper [Unknown]
  - Hypohidrosis [Unknown]
  - Asthenia [Unknown]
  - Nausea [Unknown]
  - Chest pain [Unknown]
  - Vomiting [Unknown]
  - Fatigue [Unknown]
  - Abdominal pain [Unknown]
  - Pain in extremity [Unknown]
  - Headache [Unknown]
  - Diarrhoea [Unknown]
